FAERS Safety Report 9614772 (Version 2)
Quarter: 2013Q4

REPORT INFORMATION
  Report Type: Report from Study
  Country: US (occurrence: US)
  Receive Date: 20131011
  Receipt Date: 20131107
  Transmission Date: 20140711
  Serious: Yes (Hospitalization, Other)
  Sender: FDA-Public Use
  Company Number: US-ASTELLAS-2013US010330

PATIENT
  Sex: Female
  Weight: 41 kg

DRUGS (8)
  1. BLINDED ERLOTINIB TABLET [Suspect]
     Indication: SQUAMOUS CELL CARCINOMA OF HEAD AND NECK
     Dosage: UNK
     Route: 048
     Dates: start: 20130301, end: 20130905
  2. LORAZEPAM [Suspect]
     Indication: PRODUCT USED FOR UNKNOWN INDICATION
     Dosage: UNK
     Route: 065
  3. NARCOTICS [Suspect]
     Indication: PRODUCT USED FOR UNKNOWN INDICATION
     Dosage: UNK
     Route: 065
  4. METHADONE [Concomitant]
     Indication: PAIN
     Dosage: 40 MG, Q8 HOURS
     Route: 048
  5. HYDROMORPHONE [Concomitant]
     Indication: PAIN
     Dosage: 10 MG, EVERY 4 HOURS
     Route: 048
  6. BASAL [Concomitant]
     Indication: PAIN
     Dosage: 2.8 DF, UNKNOWN/D
     Route: 042
  7. NEURONTIN [Concomitant]
     Indication: PAIN
     Dosage: 500 MG, Q8 HOURS
     Route: 065
  8. NEURONTIN [Concomitant]
     Dosage: 750 MG, TOTAL DOSE
     Route: 065

REACTIONS (12)
  - Off label use [Unknown]
  - Diarrhoea [Recovered/Resolved]
  - Ileus [Unknown]
  - Trigeminal neuralgia [Not Recovered/Not Resolved]
  - Failure to thrive [Not Recovered/Not Resolved]
  - Myoclonus [Recovered/Resolved]
  - Mental status changes [Recovered/Resolved]
  - Malignant neoplasm progression [Not Recovered/Not Resolved]
  - Metastases to lung [Not Recovered/Not Resolved]
  - Nausea [Not Recovered/Not Resolved]
  - Somnolence [Unknown]
  - Fatigue [Not Recovered/Not Resolved]
